FAERS Safety Report 5708778-1 (Version None)
Quarter: 2008Q2

REPORT INFORMATION
  Report Type: 
  Country: None (occurrence: None)
  Receive Date: 20080416
  Receipt Date: 20080404
  Transmission Date: 20081010
  Serious: Yes (Other)
  Sender: FDA-Public Use
  Company Number: 2008-01197

PATIENT
  Sex: Male

DRUGS (2)
  1. VELCADE [Suspect]
     Indication: DRUG USE FOR UNKNOWN INDICATION
     Dosage: 1.3 MG/M2,
  2. DOLASETRON (DOLASETRON) [Concomitant]

REACTIONS (2)
  - DYSKINESIA [None]
  - ILL-DEFINED DISORDER [None]
